FAERS Safety Report 7437337-8 (Version None)
Quarter: 2011Q2

REPORT INFORMATION
  Report Type: 
  Country: None (occurrence: None)
  Receive Date: 20110426
  Receipt Date: 20110415
  Transmission Date: 20111010
  Serious: Yes (Hospitalization)
  Sender: FDA-Public Use
  Company Number: CA-SANOFI-AVENTIS-2010SA051832

PATIENT
  Age: 70 Year
  Sex: Female
  Weight: 68 kg

DRUGS (12)
  1. LASIX [Concomitant]
     Route: 048
  2. COLACE [Concomitant]
     Route: 048
  3. BLINDED THERAPY [Suspect]
     Route: 048
     Dates: start: 20100718, end: 20100722
  4. WARFARIN [Concomitant]
     Route: 048
  5. ALTACE [Concomitant]
     Route: 048
  6. SLOW-K [Concomitant]
     Dosage: DOSE:1 UNIT(S)
     Route: 048
  7. ASPIRIN [Concomitant]
     Route: 048
  8. LEVOTHYROXINE SODIUM [Concomitant]
     Route: 048
  9. METOPROLOL [Concomitant]
     Route: 048
  10. ATORVASTATIN [Concomitant]
     Route: 048
  11. DRONEDARONE HCL [Suspect]
     Route: 048
     Dates: start: 20100723, end: 20100827
  12. DILTIAZEM [Concomitant]
     Route: 048

REACTIONS (2)
  - ATRIAL FIBRILLATION [None]
  - SYNCOPE [None]
